FAERS Safety Report 18701665 (Version 1)
Quarter: 2021Q1

REPORT INFORMATION
  Report Type: Report from Study
  Country: IN (occurrence: IN)
  Receive Date: 20210105
  Receipt Date: 20210105
  Transmission Date: 20210419
  Serious: Yes (Hospitalization)
  Sender: FDA-Public Use
  Company Number: NVSC2020IN346609

PATIENT
  Age: 58 Year
  Sex: Female

DRUGS (2)
  1. PIVIKTO [ALPELISIB] [Suspect]
     Active Substance: ALPELISIB
     Dosage: 250 MG, QD
     Route: 065
     Dates: start: 20201126, end: 20201222
  2. PIVIKTO [ALPELISIB] [Suspect]
     Active Substance: ALPELISIB
     Indication: BREAST CANCER METASTATIC
     Dosage: 300 MG, QD
     Route: 065
     Dates: start: 20201118, end: 20201125

REACTIONS (3)
  - Pharyngeal ulceration [Not Recovered/Not Resolved]
  - Oedema peripheral [Recovering/Resolving]
  - Fungal infection [Unknown]

NARRATIVE: CASE EVENT DATE: 20201217
